FAERS Safety Report 12955009 (Version 1)
Quarter: 2016Q4

REPORT INFORMATION
  Report Type: Report from Study
  Country: US (occurrence: US)
  Receive Date: 20161118
  Receipt Date: 20161118
  Transmission Date: 20170207
  Serious: Yes (Hospitalization, Other)
  Sender: FDA-Public Use
  Company Number: US-GILEAD-2016-0243919

PATIENT
  Age: 12 Year
  Sex: Male

DRUGS (9)
  1. AMBRISENTAN [Suspect]
     Active Substance: AMBRISENTAN
     Indication: PULMONARY HYPERTENSION
     Dosage: 10 MG, QD
     Route: 065
     Dates: start: 20160205
  2. REMODULIN [Concomitant]
     Active Substance: TREPROSTINIL
  3. LASIX [Concomitant]
     Active Substance: FUROSEMIDE
  4. LORATADINE. [Concomitant]
     Active Substance: LORATADINE
  5. LEXAPRO [Concomitant]
     Active Substance: ESCITALOPRAM OXALATE
  6. SPIRONOLACTON [Concomitant]
     Active Substance: SPIRONOLACTONE
  7. FISH OIL [Concomitant]
     Active Substance: FISH OIL
  8. ASPIRIN                            /00002701/ [Concomitant]
     Active Substance: ASPIRIN
  9. ADCIRCA [Concomitant]
     Active Substance: TADALAFIL

REACTIONS (4)
  - Transplant evaluation [Not Recovered/Not Resolved]
  - Aortic anastomosis [Unknown]
  - Off label use [Not Recovered/Not Resolved]
  - Asthma [Unknown]

NARRATIVE: CASE EVENT DATE: 20160205
